FAERS Safety Report 22339750 (Version 1)
Quarter: 2023Q2

REPORT INFORMATION
  Report Type: Report from Study
  Country: US (occurrence: US)
  Receive Date: 20230518
  Receipt Date: 20230518
  Transmission Date: 20230721
  Serious: Yes (Other)
  Sender: FDA-Public Use
  Company Number: US-002147023-NVSC2023US111412

PATIENT
  Sex: Female

DRUGS (4)
  1. TAFINLAR [Suspect]
     Active Substance: DABRAFENIB MESYLATE
     Indication: Pancreatic carcinoma metastatic
     Dosage: UNK UNK, OTHER
     Route: 065
     Dates: start: 202302, end: 202305
  2. MEKINIST [Suspect]
     Active Substance: TRAMETINIB DIMETHYL SULFOXIDE
     Indication: Pancreatic carcinoma metastatic
     Dosage: UNK, OTHER
     Route: 065
     Dates: start: 202302, end: 202305
  3. ABRAXANE [Suspect]
     Active Substance: PACLITAXEL
     Indication: Pancreatic carcinoma metastatic
     Dosage: UNK, QW (EVERY WEEK FOR FIRST 3 WEEKS OF 4-WEEK CYCLE)
     Route: 065
     Dates: start: 202302, end: 202305
  4. GEMCITABINE [Suspect]
     Active Substance: GEMCITABINE
     Indication: Pancreatic carcinoma metastatic
     Dosage: UNK, OTHER (EVERY WEEK FOR FIRST 3 WEEKS OF 4-WEEK CYCLE)
     Route: 065
     Dates: start: 202302, end: 202305

REACTIONS (3)
  - Pancreatic carcinoma metastatic [Unknown]
  - Malignant neoplasm progression [Unknown]
  - Product use in unapproved indication [Unknown]
